FAERS Safety Report 7332446-6 (Version None)
Quarter: 2011Q1

REPORT INFORMATION
  Report Type: 
  Country: None (occurrence: None)
  Receive Date: 20110304
  Receipt Date: 20110228
  Transmission Date: 20110831
  Serious: Yes (Death, Other)
  Sender: FDA-Public Use
  Company Number: US-PFIZER INC-2005143250

PATIENT
  Sex: Female

DRUGS (8)
  1. WELLBUTRIN [Concomitant]
  2. NEURONTIN [Suspect]
     Dosage: 600 MG, 3X/DAY
     Dates: start: 20020204
  3. NEURONTIN [Suspect]
     Dosage: 100 MG, 3X/DAY
     Dates: start: 19981123
  4. XANAX [Concomitant]
  5. NEURONTIN [Suspect]
     Indication: BIPOLAR DISORDER
     Dates: start: 19981123
  6. CARBON MONOXIDE [Suspect]
  7. KLONOPIN [Concomitant]
  8. NEURONTIN [Suspect]
     Dosage: 300 MG, 2X/DAY
     Dates: start: 19990427

REACTIONS (9)
  - DEPRESSION [None]
  - DRUG INEFFECTIVE [None]
  - ANXIETY [None]
  - SLEEP DISORDER [None]
  - THINKING ABNORMAL [None]
  - COMPLETED SUICIDE [None]
  - DISTURBANCE IN ATTENTION [None]
  - CARBON MONOXIDE POISONING [None]
  - ASTHENIA [None]
